FAERS Safety Report 25755920 (Version 2)
Quarter: 2025Q4

REPORT INFORMATION
  Report Type: Spontaneous
  Country: US (occurrence: US)
  Receive Date: 20250903
  Receipt Date: 20251125
  Transmission Date: 20260118
  Serious: No
  Sender: BRISTOL-MYERS SQUIBB COMPANY
  Company Number: US-BRISTOL-MYERS SQUIBB COMPANY-2025-119695

PATIENT
  Age: 65 Year
  Sex: Female

DRUGS (1)
  1. POMALYST [Suspect]
     Active Substance: POMALIDOMIDE
     Indication: Myelodysplastic syndrome
     Route: 048

REACTIONS (3)
  - Gastrointestinal microorganism overgrowth [Unknown]
  - Off label use [Unknown]
  - Renal function test abnormal [Unknown]
